FAERS Safety Report 5619495-0 (Version None)
Quarter: 2008Q1

REPORT INFORMATION
  Report Type: 
  Country: None (occurrence: None)
  Receive Date: 20080109
  Receipt Date: 20061127
  Transmission Date: 20080703
  Serious: Yes (Hospitalization, Other)
  Sender: FDA-Public Use
  Company Number: WAES 0611USA07044

PATIENT
  Age: 76 Year
  Sex: Female
  Weight: 115.6672 kg

DRUGS (1)
  1. ZETIA [Suspect]
     Indication: LIPIDS INCREASED
     Dosage: 10 MG, DAILY, PO
     Route: 048
     Dates: start: 20061030, end: 20061122

REACTIONS (1)
  - PANCREATITIS [None]
